FAERS Safety Report 10140215 (Version 2)
Quarter: 2014Q2

REPORT INFORMATION
  Report Type: Spontaneous
  Country: US (occurrence: US)
  Receive Date: 20140429
  Receipt Date: 20140512
  Transmission Date: 20141212
  Serious: Yes (Hospitalization, Other)
  Sender: FDA-Public Use
  Company Number: US-PFIZER INC-2014115318

PATIENT
  Age: 52 Year
  Sex: Female
  Weight: 119 kg

DRUGS (5)
  1. LIPITOR [Suspect]
     Indication: BLOOD CHOLESTEROL ABNORMAL
     Dosage: 10 MG, UNK
     Dates: start: 200005
  2. LIPITOR [Suspect]
     Dosage: 20 MG, UNK
     Dates: start: 200108
  3. LIPITOR [Suspect]
     Dosage: 40 MG, UNK
     Dates: start: 200203
  4. LIPITOR [Suspect]
     Dosage: 80 MG, UNK
     Dates: start: 200212, end: 200301
  5. LIPITOR [Suspect]
     Dosage: UNK
     Dates: end: 200301

REACTIONS (7)
  - Paralysis [Unknown]
  - Abasia [Unknown]
  - Hypoaesthesia [Unknown]
  - Paraesthesia [Unknown]
  - Paraesthesia [Unknown]
  - Pain in extremity [Unknown]
  - Muscle spasms [Unknown]
